FAERS Safety Report 12921918 (Version 1)
Quarter: 2016Q4

REPORT INFORMATION
  Report Type: Spontaneous
  Country: IT (occurrence: IT)
  Receive Date: 20161108
  Receipt Date: 20161108
  Transmission Date: 20170207
  Serious: Yes (Other)
  Sender: FDA-Public Use
  Company Number: PHHY2016IT152798

PATIENT
  Age: 8 Year
  Sex: Male

DRUGS (4)
  1. RITALIN [Suspect]
     Active Substance: METHYLPHENIDATE HYDROCHLORIDE
     Indication: ATTENTION DEFICIT/HYPERACTIVITY DISORDER
     Dosage: 20 MG, QD
     Route: 048
     Dates: start: 20160414, end: 20160612
  2. DEPAKIN [Concomitant]
     Active Substance: VALPROATE SODIUM
     Indication: EPILEPTIC ENCEPHALOPATHY
     Dosage: 400 MG, UNK
     Route: 048
     Dates: start: 20090101, end: 20160928
  3. RITALIN [Suspect]
     Active Substance: METHYLPHENIDATE HYDROCHLORIDE
     Dosage: 10 MG, QD
     Route: 048
  4. DEPAKIN [Concomitant]
     Active Substance: VALPROATE SODIUM
     Dosage: 300 MG, BID
     Route: 048

REACTIONS (3)
  - Sedation [Recovered/Resolved]
  - Epilepsy [Recovered/Resolved]
  - Apathy [Recovered/Resolved]

NARRATIVE: CASE EVENT DATE: 20160612
